FAERS Safety Report 8571884-0 (Version None)
Quarter: 2012Q3

REPORT INFORMATION
  Report Type: 
  Country: None (occurrence: None)
  Receive Date: 20120724
  Receipt Date: 20120717
  Transmission Date: 20120928
  Serious: Yes (Death, Hospitalization)
  Sender: FDA-Public Use
  Company Number: US-2012-10930

PATIENT
  Age: 66 Year
  Sex: Male

DRUGS (1)
  1. BUSULFEX [Suspect]
     Dosage: INTRAVENOUS
     Route: 042
     Dates: start: 20110719, end: 20110723

REACTIONS (5)
  - ACUTE RESPIRATORY DISTRESS SYNDROME [None]
  - PNEUMONIA HAEMOPHILUS [None]
  - RESPIRATORY FAILURE [None]
  - CLOSTRIDIAL INFECTION [None]
  - DEEP VEIN THROMBOSIS [None]
